FAERS Safety Report 14215456 (Version 1)
Quarter: 2017Q4

REPORT INFORMATION
  Report Type: Spontaneous
  Country: FR (occurrence: FR)
  Receive Date: 20171122
  Receipt Date: 20171122
  Transmission Date: 20180321
  Serious: Yes (Other)
  Sender: FDA-Public Use
  Company Number: FR-SYNTHON BV-NL01PV17_45371

PATIENT
  Age: 94 Year
  Sex: Male

DRUGS (2)
  1. LEXOMIL [Concomitant]
     Active Substance: BROMAZEPAM
     Dosage: UNK
     Route: 048
  2. TAMSULOSINE BIOGARAN [Suspect]
     Active Substance: TAMSULOSIN
     Indication: BENIGN PROSTATIC HYPERPLASIA
     Dosage: 1 DF (0.4 MG), QD
     Route: 048
     Dates: start: 201710

REACTIONS (3)
  - Micturition urgency [Not Recovered/Not Resolved]
  - Blood pressure increased [Unknown]
  - Urinary retention [Not Recovered/Not Resolved]
